FAERS Safety Report 5168377-X (Version None)
Quarter: 2006Q4

REPORT INFORMATION
  Report Type: 
  Country: None (occurrence: None)
  Receive Date: 20061208
  Receipt Date: 20061204
  Transmission Date: 20070319
  Serious: Yes (Other)
  Sender: FDA-Public Use
  Company Number: US-JNJFOC-20061201400

PATIENT
  Age: 75 Year
  Sex: Male

DRUGS (3)
  1. RISPERDAL CONSTA [Suspect]
     Indication: DRUG ADMINISTRATION ERROR
     Route: 042
  2. HALDOL [Concomitant]
     Route: 048
  3. HALDOL [Concomitant]

REACTIONS (2)
  - INCORRECT ROUTE OF DRUG ADMINISTRATION [None]
  - PULMONARY EMBOLISM [None]
